FAERS Safety Report 5976488-1 (Version None)
Quarter: 2008Q4

REPORT INFORMATION
  Report Type: 
  Country: None (occurrence: None)
  Receive Date: 20081126
  Receipt Date: 20081115
  Transmission Date: 20090506
  Serious: Yes (Other)
  Sender: FDA-Public Use
  Company Number: CHPA2008US19698

PATIENT
  Age: 3 Year
  Sex: Female

DRUGS (1)
  1. TRIAMINIC CHEST + NASAL CONGESTION (NCH) (GUAIFENESIN, PHENYLEPHRINE H [Suspect]
     Indication: COUGH
     Dosage: 1 TSP, QD, ORAL
     Route: 048

REACTIONS (1)
  - CONVULSION [None]
